FAERS Safety Report 6765118-7 (Version None)
Quarter: 2010Q2

REPORT INFORMATION
  Report Type: 
  Country: None (occurrence: None)
  Receive Date: 20100609
  Receipt Date: 20100609
  Transmission Date: 20101027
  Serious: Yes (Hospitalization)
  Sender: FDA-Public Use
  Company Number: None

PATIENT
  Sex: Male
  Weight: 68 kg

DRUGS (7)
  1. LISINOPRIL [Suspect]
     Indication: HYPERTENSION
     Dosage: 40 MG DAILY PO
     Route: 048
  2. ALLOPURINOL [Concomitant]
  3. NAPROXEN [Concomitant]
  4. PROBENECID [Concomitant]
  5. COLCHICINE [Concomitant]
  6. SIMVASTATIN [Concomitant]
  7. VIAGRA [Concomitant]

REACTIONS (2)
  - DYSPNOEA [None]
  - SWOLLEN TONGUE [None]
